FAERS Safety Report 16633621 (Version 3)
Quarter: 2021Q2

REPORT INFORMATION
  Report Type: Other
  Country: DE (occurrence: DE)
  Receive Date: 20190725
  Receipt Date: 20210504
  Transmission Date: 20210716
  Serious: No
  Sender: FDA-Public Use
  Company Number: DE-ROCHE-2361678

PATIENT
  Age: 64 Year
  Sex: Female

DRUGS (7)
  1. OCREVUS [Suspect]
     Active Substance: OCRELIZUMAB
     Indication: PRIMARY PROGRESSIVE MULTIPLE SCLEROSIS
     Dosage: OCT/2019
     Route: 042
     Dates: start: 20190702
  2. ROPINIROL [Concomitant]
     Active Substance: ROPINIROLE
  3. GABAPENTIN. [Concomitant]
     Active Substance: GABAPENTIN
  4. OMEPRAZOL [Concomitant]
     Active Substance: OMEPRAZOLE
  5. OCREVUS [Suspect]
     Active Substance: OCRELIZUMAB
     Route: 042
     Dates: start: 201910
  6. TORASEMID [Concomitant]
     Active Substance: TORSEMIDE
  7. BROMAZEPAM [Concomitant]
     Active Substance: BROMAZEPAM

REACTIONS (6)
  - Nasopharyngitis [Not Recovered/Not Resolved]
  - Upper respiratory tract infection [Unknown]
  - Drug ineffective [Unknown]
  - Oral herpes [Recovered/Resolved]
  - Eczema [Not Recovered/Not Resolved]
  - Nerve compression [Not Recovered/Not Resolved]

NARRATIVE: CASE EVENT DATE: 20190702
